FAERS Safety Report 17625329 (Version 1)
Quarter: 2020Q2

REPORT INFORMATION
  Report Type: Spontaneous
  Country: US (occurrence: US)
  Receive Date: 20200403
  Receipt Date: 20200403
  Transmission Date: 20200713
  Serious: Yes (Other)
  Sender: FDA-Public Use
  Company Number: US-GILEAD-2020-0456883

PATIENT
  Sex: Male

DRUGS (13)
  1. NORVIR [Concomitant]
     Active Substance: RITONAVIR
  2. LISINOPRIL. [Concomitant]
     Active Substance: LISINOPRIL
  3. PREZISTA [Concomitant]
     Active Substance: DARUNAVIR ETHANOLATE
  4. ZITHROMAX [Concomitant]
     Active Substance: AZITHROMYCIN DIHYDRATE
  5. LEVAQUIN [Concomitant]
     Active Substance: LEVOFLOXACIN
     Route: 065
  6. TRUVADA [Suspect]
     Active Substance: EMTRICITABINE\TENOFOVIR DISOPROXIL FUMARATE
     Indication: HIV INFECTION
     Dosage: 1 DOSAGE FORM, QD
     Route: 048
     Dates: start: 201306, end: 2017
  7. BENZONATATE. [Concomitant]
     Active Substance: BENZONATATE
  8. DESCOVY [Concomitant]
     Active Substance: EMTRICITABINE\TENOFOVIR ALAFENAMIDE FUMARATE
  9. ALBUTEROL SULFATE AND IPRATROPIUM BROMIDE [Concomitant]
     Active Substance: ALBUTEROL SULFATE\IPRATROPIUM BROMIDE
  10. BIKTARVY [Concomitant]
     Active Substance: BICTEGRAVIR SODIUM\EMTRICITABINE\TENOFOVIR ALAFENAMIDE FUMARATE
  11. COUMADIN [Concomitant]
     Active Substance: WARFARIN SODIUM
  12. ATRIPLA [Suspect]
     Active Substance: EFAVIRENZ\EMTRICITABINE\TENOFOVIR DISOPROXIL FUMARATE
     Indication: HIV INFECTION
     Dosage: UNK
     Route: 065
     Dates: start: 201106, end: 201306
  13. PROTONIX [OMEPRAZOLE] [Concomitant]
     Active Substance: OMEPRAZOLE

REACTIONS (2)
  - Bone density decreased [Not Recovered/Not Resolved]
  - Chronic kidney disease [Not Recovered/Not Resolved]

NARRATIVE: CASE EVENT DATE: 2019
